FAERS Safety Report 7404237-9 (Version None)
Quarter: 2011Q2

REPORT INFORMATION
  Report Type: 
  Country: None (occurrence: None)
  Receive Date: 20110408
  Receipt Date: 20110323
  Transmission Date: 20111010
  Serious: Yes (Hospitalization)
  Sender: FDA-Public Use
  Company Number: PHHY2010CA47984

PATIENT
  Sex: Female

DRUGS (6)
  1. OXYCONTIN [Concomitant]
  2. ACETAMINOPHEN [Concomitant]
  3. MELOXICAM [Concomitant]
  4. EXJADE [Suspect]
     Indication: MYELODYSPLASTIC SYNDROME
     Dosage: 1500 MG, QD
     Route: 048
  5. TEMAZEPAM [Concomitant]
  6. FOLIC ACID [Concomitant]

REACTIONS (12)
  - PNEUMONIA [None]
  - BACK PAIN [None]
  - NECK PAIN [None]
  - BACTERIAL INFECTION [None]
  - DIARRHOEA [None]
  - INFLUENZA [None]
  - PAIN [None]
  - CONSTIPATION [None]
  - DRY MOUTH [None]
  - PRURITUS [None]
  - ACNE [None]
  - FATIGUE [None]
